FAERS Safety Report 8019761-8 (Version None)
Quarter: 2012Q1

REPORT INFORMATION
  Report Type: 
  Country: None (occurrence: None)
  Receive Date: 20120103
  Receipt Date: 20111223
  Transmission Date: 20120608
  Serious: Yes (Other)
  Sender: FDA-Public Use
  Company Number: NO-GLAXOSMITHKLINE-B0772221A

PATIENT
  Sex: Female

DRUGS (1)
  1. LAMICTAL [Suspect]
     Indication: EPILEPSY
     Dosage: 150MG TWICE PER DAY
     Route: 065
     Dates: start: 20100122

REACTIONS (3)
  - MENSTRUATION IRREGULAR [None]
  - INFERTILITY [None]
  - WEIGHT GAIN POOR [None]
